FAERS Safety Report 5347907-9 (Version None)
Quarter: 2007Q2

REPORT INFORMATION
  Report Type: 
  Country: None (occurrence: None)
  Receive Date: 20070606
  Receipt Date: 20070601
  Transmission Date: 20071010
  Serious: Yes (Life-Threatening, Hospitalization, Disabling, Other)
  Sender: FDA-Public Use
  Company Number: A0649296A

PATIENT
  Age: 14 Year
  Sex: Male
  Weight: 68.2 kg

DRUGS (2)
  1. WELLBUTRIN XL [Suspect]
     Indication: DEPRESSION
     Dosage: 150MG PER DAY
     Route: 048
     Dates: start: 20060814, end: 20070430
  2. CLONIDINE [Concomitant]
     Indication: ANXIETY
     Dosage: .1MG AT NIGHT
     Dates: start: 20060101, end: 20060401

REACTIONS (12)
  - AMNESIA [None]
  - ANOXIA [None]
  - BALANCE DISORDER [None]
  - BRADYCARDIA [None]
  - DYSKINESIA [None]
  - GRAND MAL CONVULSION [None]
  - INCONTINENCE [None]
  - LOSS OF CONSCIOUSNESS [None]
  - NERVOUS SYSTEM DISORDER [None]
  - SYNCOPE VASOVAGAL [None]
  - VISUAL FIELD DEFECT [None]
  - VOMITING [None]
